FAERS Safety Report 4339866-2 (Version None)
Quarter: 2004Q2

REPORT INFORMATION
  Report Type: 
  Country: None (occurrence: None)
  Receive Date: 20040412
  Receipt Date: 20030825
  Transmission Date: 20050107
  Serious: Yes (Hospitalization, Other)
  Sender: FDA-Public Use
  Company Number: DE-JNJFOC-20030801932

PATIENT
  Sex: Male
  Weight: 60 kg

DRUGS (2)
  1. RISPERDAL [Suspect]
     Indication: SCHIZOAFFECTIVE DISORDER
     Dosage: ORAL
     Route: 048
  2. CLOZAPINE [Suspect]
     Indication: DRUG USE FOR UNKNOWN INDICATION

REACTIONS (4)
  - DRUG INTERACTION [None]
  - LEUKOPENIA [None]
  - THROMBOCYTOPENIA [None]
  - TONGUE NEOPLASM MALIGNANT STAGE UNSPECIFIED [None]
